FAERS Safety Report 7657079-3 (Version None)
Quarter: 2011Q3

REPORT INFORMATION
  Report Type: 
  Country: None (occurrence: None)
  Receive Date: 20110804
  Receipt Date: 20100806
  Transmission Date: 20111222
  Serious: No
  Sender: FDA-Public Use
  Company Number: US-GLAXOSMITHKLINE-A0874433A

PATIENT
  Age: 87 Year
  Sex: Female

DRUGS (3)
  1. NORVASC [Concomitant]
  2. ADVAIR DISKUS 100/50 [Suspect]
     Indication: ASTHMA
     Dosage: 2PUFF TWICE PER DAY
     Route: 055
  3. SYNTHROID [Concomitant]

REACTIONS (1)
  - PRODUCTIVE COUGH [None]
